FAERS Safety Report 5243299-4 (Version None)
Quarter: 2007Q1

REPORT INFORMATION
  Report Type: 
  Country: None (occurrence: None)
  Receive Date: 20070221
  Receipt Date: 20070214
  Transmission Date: 20070707
  Serious: Yes (Hospitalization)
  Sender: FDA-Public Use
  Company Number: JP-MERCK-0612USA03216

PATIENT
  Age: 80 Year
  Sex: Female
  Weight: 47 kg

DRUGS (5)
  1. ZOCOR [Suspect]
     Indication: HYPERLIPIDAEMIA
     Route: 048
     Dates: start: 20060801, end: 20061127
  2. GLIMICRON [Suspect]
     Indication: DIABETES MELLITUS
     Route: 048
     Dates: end: 20061127
  3. ONEALFA [Suspect]
     Indication: OSTEOPOROSIS
     Route: 048
     Dates: end: 20061127
  4. SELBEX [Suspect]
     Indication: ANOREXIA
     Route: 048
     Dates: end: 20061127
  5. ARICEPT [Suspect]
     Indication: DEMENTIA
     Route: 048
     Dates: end: 20061127

REACTIONS (1)
  - MIXED HEPATOCELLULAR-CHOLESTATIC INJURY [None]
